FAERS Safety Report 14759137 (Version 6)
Quarter: 2019Q1

REPORT INFORMATION
  Report Type: Spontaneous
  Country: GB (occurrence: GB)
  Receive Date: 20180413
  Receipt Date: 20190126
  Transmission Date: 20190417
  Serious: Yes (Life-Threatening, Hospitalization, Other)
  Sender: FDA-Public Use
  Company Number: GB-B.I. PHARMACEUTICALS,INC./RIDGEFIELD-2018-BI-020105

PATIENT
  Age: 29 Year
  Sex: Female

DRUGS (17)
  1. SALBUTAMOL [Suspect]
     Active Substance: ALBUTEROL
     Dosage: 12.3 MG, UNK
     Route: 042
  2. SALBUTAMOL [Suspect]
     Active Substance: ALBUTEROL
     Indication: ASTHMA
     Dosage: UNK
     Route: 042
  3. KETAMINE [Suspect]
     Active Substance: KETAMINE
     Indication: ASTHMA
     Dosage: UNK (INCREASED TO 45 MICROG/KG/MIN)
     Route: 042
  4. HYDROCORTISONE. [Suspect]
     Active Substance: HYDROCORTISONE
     Indication: ASTHMA
     Dosage: 100 MG, UNK
     Route: 042
  5. SALBUTAMOL [Suspect]
     Active Substance: ALBUTEROL
     Dosage: UNK ((NEBULISER)
     Route: 042
  6. SALBUTAMOL [Suspect]
     Active Substance: ALBUTEROL
     Dosage: 2 BOLUSES
     Route: 065
  7. SEVOFLURANE. [Suspect]
     Active Substance: SEVOFLURANE
     Indication: ASTHMA
     Dosage: DAILY DOSE-8 %
     Route: 055
  8. MONTELUKAST SODIUM. [Suspect]
     Active Substance: MONTELUKAST SODIUM
     Indication: ASTHMA
     Dosage: UNK
     Route: 065
  9. EPINEPHRINE. [Suspect]
     Active Substance: EPINEPHRINE
     Indication: ASTHMA
     Dosage: 350 MCG, UNK (DILUTED IN SMALL INCREMENTS)
     Route: 065
  10. COMBIVENT [Suspect]
     Active Substance: ALBUTEROL SULFATE\IPRATROPIUM BROMIDE
     Indication: ASTHMA
     Dosage: 0.5 MG, UNK (NEBULISATION)
     Route: 065
  11. SALBUTAMOL [Suspect]
     Active Substance: ALBUTEROL
     Dosage: 250 MCG, UNK (2 BOLUSES)
     Route: 065
  12. PREDNISOLONE. [Suspect]
     Active Substance: PREDNISOLONE
     Indication: ASTHMA
     Dosage: 30 MG, UNK
     Route: 048
  13. MAGNESIUM SULFATE. [Concomitant]
     Active Substance: MAGNESIUM SULFATE
     Indication: ASTHMA
     Dosage: UNK
     Route: 065
  14. COMBIVENT [Suspect]
     Active Substance: ALBUTEROL SULFATE\IPRATROPIUM BROMIDE
     Indication: ASTHMA
     Dosage: 0.5 MG, UNK
     Route: 065
  15. SALBUTAMOL [Suspect]
     Active Substance: ALBUTEROL
     Indication: ASTHMA
     Dosage: 15 MG, UNK ((NEBULISER : IN REPEATED DOSES)
     Route: 042
  16. THEOPHYLLINE [Suspect]
     Active Substance: THEOPHYLLINE ANHYDROUS
     Indication: ASTHMA
     Dosage: UNK
     Route: 065
  17. KETAMINE [Suspect]
     Active Substance: KETAMINE
     Indication: ASTHMA
     Dosage: INCREASED TO 45 MICROG/KG/MIN
     Route: 042

REACTIONS (15)
  - Wheezing [Recovering/Resolving]
  - Blood bicarbonate decreased [Recovering/Resolving]
  - Dyspnoea [Recovering/Resolving]
  - Blood lactic acid increased [Recovering/Resolving]
  - Respiratory rate increased [Recovering/Resolving]
  - Acute respiratory failure [Recovered/Resolved]
  - PCO2 increased [Recovering/Resolving]
  - Blood pH decreased [Recovering/Resolving]
  - Respiratory acidosis [Recovering/Resolving]
  - Cyanosis [Recovering/Resolving]
  - Oxygen saturation decreased [Recovering/Resolving]
  - PO2 decreased [Recovering/Resolving]
  - Lung hyperinflation [Recovering/Resolving]
  - Drug ineffective [Recovering/Resolving]
  - Hypercapnia [Recovering/Resolving]
